FAERS Safety Report 13920271 (Version 1)
Quarter: 2017Q3

REPORT INFORMATION
  Report Type: Spontaneous
  Country: US (occurrence: US)
  Receive Date: 20170829
  Receipt Date: 20170829
  Transmission Date: 20171127
  Serious: Yes (Hospitalization, Disabling, Other)
  Sender: FDA-Public Use
  Company Number: None

PATIENT
  Age: 34 Year
  Sex: Female
  Weight: 130.5 kg

DRUGS (3)
  1. 8.4% SODIUM BICARBONATE INJECTION [Suspect]
     Active Substance: SODIUM BICARBONATE
     Indication: CAESAREAN SECTION
     Dates: start: 20170502, end: 20170507
  2. MOTRIN [Concomitant]
     Active Substance: IBUPROFEN
  3. PRENATAL VITAMINS [Concomitant]
     Active Substance: VITAMINS

REACTIONS (7)
  - Soft tissue infection [None]
  - Impaired healing [None]
  - Incision site haemorrhage [None]
  - Product quality issue [None]
  - Incision site swelling [None]
  - Postoperative wound infection [None]
  - Wound secretion [None]

NARRATIVE: CASE EVENT DATE: 20170605
